FAERS Safety Report 4294539-X (Version None)
Quarter: 2004Q1

REPORT INFORMATION
  Report Type: 
  Country: None (occurrence: None)
  Receive Date: 20040213
  Receipt Date: 20020417
  Transmission Date: 20041129
  Serious: Yes (Hospitalization, Disabling)
  Sender: FDA-Public Use
  Company Number: US-BRISTOL-MYERS SQUIBB COMPANY-11823747

PATIENT
  Age: 53 Year
  Sex: Male

DRUGS (2)
  1. ADCORTYL INJ [Suspect]
     Indication: BACK PAIN
     Route: 008
  2. PROCAINE HCL [Suspect]
     Route: 008

REACTIONS (18)
  - BACTERIAL INFECTION [None]
  - BLADDER DISTENSION [None]
  - BLOOD GLUCOSE INCREASED [None]
  - CHILLS [None]
  - COMA [None]
  - CONFUSIONAL STATE [None]
  - DEPRESSED LEVEL OF CONSCIOUSNESS [None]
  - EXTRADURAL ABSCESS [None]
  - HAEMODIALYSIS [None]
  - HEADACHE [None]
  - MEMORY IMPAIRMENT [None]
  - MUSCULOSKELETAL STIFFNESS [None]
  - PAIN IN EXTREMITY [None]
  - PARAPLEGIA [None]
  - PYREXIA [None]
  - RENAL FAILURE ACUTE [None]
  - STAPHYLOCOCCAL ABSCESS [None]
  - UPPER GASTROINTESTINAL HAEMORRHAGE [None]
